FAERS Safety Report 12912887 (Version 3)
Quarter: 2017Q1

REPORT INFORMATION
  Report Type: Spontaneous
  Country: BD (occurrence: BD)
  Receive Date: 20161104
  Receipt Date: 20170123
  Transmission Date: 20170428
  Serious: Yes (Death, Hospitalization)
  Sender: FDA-Public Use
  Company Number: BD-JNJFOC-20161102364

PATIENT
  Age: 10 Year
  Sex: Female
  Weight: 28 kg

DRUGS (1)
  1. VERMOX [Suspect]
     Active Substance: MEBENDAZOLE
     Indication: PRODUCT USED FOR UNKNOWN INDICATION
     Route: 065
     Dates: start: 20161023

REACTIONS (5)
  - Seizure [Not Recovered/Not Resolved]
  - Dehydration [Fatal]
  - Diarrhoea [Fatal]
  - Headache [Not Recovered/Not Resolved]
  - Vomiting [Not Recovered/Not Resolved]

NARRATIVE: CASE EVENT DATE: 20161023
